FAERS Safety Report 23619705 (Version 4)
Quarter: 2024Q2

REPORT INFORMATION
  Report Type: Spontaneous
  Country: US (occurrence: US)
  Receive Date: 20240312
  Receipt Date: 20240411
  Transmission Date: 20240716
  Serious: Yes (Hospitalization, Other)
  Sender: FDA-Public Use
  Company Number: None

PATIENT
  Age: 75 Year
  Sex: Female
  Weight: 52 kg

DRUGS (17)
  1. ATORVASTATIN CALCIUM [Interacting]
     Active Substance: ATORVASTATIN CALCIUM
     Indication: Product used for unknown indication
     Dosage: UNK
     Route: 065
  2. TACROLIMUS [Interacting]
     Active Substance: TACROLIMUS
     Indication: Immunosuppressant drug therapy
     Dosage: UNK (GOAL 4-6 NG/ML)
     Route: 065
  3. TACROLIMUS [Interacting]
     Active Substance: TACROLIMUS
     Dosage: UNK (RESUMED ON DAY 7)
     Route: 065
  4. VALSARTAN [Interacting]
     Active Substance: VALSARTAN
     Indication: Product used for unknown indication
     Dosage: UNK
     Route: 065
  5. MYCOPHENOLATE MOFETIL [Suspect]
     Active Substance: MYCOPHENOLATE MOFETIL
     Indication: Immunosuppressant drug therapy
     Dosage: UNK
     Route: 065
  6. NIRMATRELVIR [Interacting]
     Active Substance: NIRMATRELVIR
     Indication: COVID-19
     Dosage: UNK (5 DOSES)
     Route: 065
  7. NIRMATRELVIR [Interacting]
     Active Substance: NIRMATRELVIR
     Dosage: 300 MILLIGRAM
     Route: 065
  8. NIRMATRELVIR [Interacting]
     Active Substance: NIRMATRELVIR
     Dosage: 4 DOSAGE FORM (TOTAL)
     Route: 065
  9. RITONAVIR [Interacting]
     Active Substance: RITONAVIR
     Indication: COVID-19
     Dosage: UNK (5 DOSES)
     Route: 065
  10. RITONAVIR [Interacting]
     Active Substance: RITONAVIR
     Dosage: 100 MILLIGRAM
     Route: 065
  11. RITONAVIR [Interacting]
     Active Substance: RITONAVIR
     Dosage: 4 DOSAGE FORM (TOTAL)
     Route: 065
  12. PHENYTOIN [Interacting]
     Active Substance: PHENYTOIN
     Indication: Drug level above therapeutic
     Dosage: 200 MILLIGRAM, BID (BY MOUTH TWICE DAILY FOR 5 DOSES)
     Route: 048
  13. PHENYTOIN [Interacting]
     Active Substance: PHENYTOIN
     Indication: Acute kidney injury
  14. PHENYTOIN [Interacting]
     Active Substance: PHENYTOIN
     Indication: Neurotoxicity
  15. PHENYTOIN [Interacting]
     Active Substance: PHENYTOIN
     Indication: Toxicity to various agents
  16. DAPAGLIFLOZIN [Concomitant]
     Active Substance: DAPAGLIFLOZIN
     Indication: Product used for unknown indication
     Dosage: UNK
     Route: 065
  17. LOSARTAN [Concomitant]
     Active Substance: LOSARTAN
     Indication: Product used for unknown indication
     Dosage: UNK
     Route: 065

REACTIONS (6)
  - Drug interaction [Unknown]
  - Toxicity to various agents [Recovered/Resolved]
  - Immunosuppressant drug level increased [Recovered/Resolved]
  - Acute kidney injury [Recovered/Resolved]
  - Visual impairment [Recovered/Resolved]
  - COVID-19 [Unknown]
